FAERS Safety Report 8083549-2 (Version None)
Quarter: 2012Q1

REPORT INFORMATION
  Report Type: 
  Country: None (occurrence: None)
  Receive Date: 20120127
  Receipt Date: 20110309
  Transmission Date: 20120608
  Serious: No
  Sender: FDA-Public Use
  Company Number: US-ABBOTT-11P-163-0698564-00

PATIENT
  Age: 66 Year
  Sex: Male

DRUGS (3)
  1. SIMVASTATIN [Concomitant]
     Indication: PRODUCT USED FOR UNKNOWN INDICATION
     Dosage: ??DAILY
  2. ENTERA [Concomitant]
     Indication: BLOOD TRIGLYCERIDES INCREASED
  3. HUMIRA [Suspect]
     Indication: PSORIASIS
     Dates: end: 20101101

REACTIONS (2)
  - HEPATIC ENZYME INCREASED [None]
  - LIVER FUNCTION TEST ABNORMAL [None]
